FAERS Safety Report 16496059 (Version 3)
Quarter: 2019Q3

REPORT INFORMATION
  Report Type: Spontaneous
  Country: US (occurrence: US)
  Receive Date: 20190628
  Receipt Date: 20190711
  Transmission Date: 20191004
  Serious: Yes (Death, Hospitalization, Other)
  Sender: FDA-Public Use
  Company Number: US-ACTELION-A-US2019-192318

PATIENT
  Age: 68 Year
  Sex: Female
  Weight: 56.24 kg

DRUGS (5)
  1. NIFEDIPINE. [Concomitant]
     Active Substance: NIFEDIPINE
  2. VELETRI [Suspect]
     Active Substance: EPOPROSTENOL
     Dosage: 62 NG/KG, PER MIN
     Route: 042
  3. COUMADIN [Concomitant]
     Active Substance: WARFARIN SODIUM
  4. REMODULIN [Concomitant]
     Active Substance: TREPROSTINIL
     Dosage: UNK
     Route: 058
     Dates: end: 201906
  5. VELETRI [Suspect]
     Active Substance: EPOPROSTENOL
     Indication: PULMONARY ARTERIAL HYPERTENSION
     Dosage: 10 NG/KG, PER MIN
     Route: 042
     Dates: start: 201906

REACTIONS (9)
  - Neck pain [Unknown]
  - Dyspnoea [Unknown]
  - Flushing [Unknown]
  - Death [Fatal]
  - Nausea [Unknown]
  - Pain in jaw [Unknown]
  - Diarrhoea [Unknown]
  - Pain in extremity [Unknown]
  - Headache [Unknown]

NARRATIVE: CASE EVENT DATE: 201906
